FAERS Safety Report 18149750 (Version 1)
Quarter: 2020Q3

REPORT INFORMATION
  Report Type: Spontaneous
  Country: CA (occurrence: CA)
  Receive Date: 20200814
  Receipt Date: 20200814
  Transmission Date: 20201103
  Serious: Yes (Hospitalization, Other)
  Sender: FDA-Public Use
  Company Number: CA-AUROBINDO-AUR-APL-2020-038746

PATIENT
  Age: 41 Year
  Sex: Female

DRUGS (5)
  1. CIPROFLOXACIN. [Suspect]
     Active Substance: CIPROFLOXACIN
     Indication: OOPHORITIS
     Dosage: 500 MILLIGRAM, TWO TIMES A DAY
     Route: 048
  2. METRONIDAZOLE. [Suspect]
     Active Substance: METRONIDAZOLE
     Indication: OOPHORITIS
     Dosage: 500 MILLIGRAM,ONE EVERY 3 DAYS
     Route: 048
  3. CIPROFLOXACIN. [Suspect]
     Active Substance: CIPROFLOXACIN
     Indication: GASTROINTESTINAL INFECTION
  4. METRONIDAZOLE. [Suspect]
     Active Substance: METRONIDAZOLE
     Indication: GASTROINTESTINAL INFECTION
  5. REMICADE [Suspect]
     Active Substance: INFLIXIMAB
     Indication: COLITIS ULCERATIVE
     Dosage: 300 MILLIGRAM,1 EVERY 6 WEEKS
     Route: 042

REACTIONS (5)
  - Syncope [Unknown]
  - Gastrointestinal infection [Unknown]
  - Vomiting [Unknown]
  - Diarrhoea [Unknown]
  - Oophoritis [Unknown]
